FAERS Safety Report 7609054-2 (Version None)
Quarter: 2011Q3

REPORT INFORMATION
  Report Type: 
  Country: None (occurrence: None)
  Receive Date: 20110706
  Receipt Date: 20110621
  Transmission Date: 20111222
  Serious: Yes (Hospitalization, Other)
  Sender: FDA-Public Use
  Company Number: 2011MA007873

PATIENT
  Age: 30 Year
  Sex: Female

DRUGS (3)
  1. METOPROLOL TARTRATE [Concomitant]
  2. DILTIAZEM HYDROCHLORIDE [Suspect]
     Indication: OVERDOSE
  3. AMIODARONE HCL [Concomitant]

REACTIONS (5)
  - CONFUSIONAL STATE [None]
  - MULTIPLE DRUG OVERDOSE [None]
  - ANURIA [None]
  - CARDIOGENIC SHOCK [None]
  - MULTIPLE DRUG OVERDOSE INTENTIONAL [None]
